FAERS Safety Report 7183782-8 (Version None)
Quarter: 2010Q4

REPORT INFORMATION
  Report Type: 
  Country: None (occurrence: None)
  Receive Date: 20101220
  Receipt Date: 20101220
  Transmission Date: 20110411
  Serious: Yes (Hospitalization)
  Sender: FDA-Public Use
  Company Number: None

PATIENT
  Sex: Male
  Weight: 68.79 kg

DRUGS (5)
  1. METHOTREXATE [Suspect]
     Dosage: 30 MG
     Dates: end: 20101111
  2. CYCLOPHOSPHAMIDE [Suspect]
     Dosage: 3825 MG
     Dates: end: 20101025
  3. CYTARABINE [Suspect]
     Dosage: 60 MG
  4. ETOPOSIDE [Suspect]
     Dosage: 875 MG
     Dates: end: 20101025
  5. HYDROCORTISONE [Suspect]
     Dosage: 30 MG
     Dates: end: 20101111

REACTIONS (12)
  - ABDOMINAL PAIN UPPER [None]
  - APHASIA [None]
  - BONE MARROW FAILURE [None]
  - DIZZINESS [None]
  - DRUG INEFFECTIVE [None]
  - DYSARTHRIA [None]
  - GAZE PALSY [None]
  - HEADACHE [None]
  - HEMIPARESIS [None]
  - NAUSEA [None]
  - NEUROTOXICITY [None]
  - UNRESPONSIVE TO STIMULI [None]
